FAERS Safety Report 10576087 (Version 2)
Quarter: 2014Q4

REPORT INFORMATION
  Report Type: Spontaneous
  Country: US (occurrence: US)
  Receive Date: 20141111
  Receipt Date: 20141204
  Transmission Date: 20150529
  Serious: Yes (Hospitalization)
  Sender: FDA-Public Use
  Company Number: US-UNITED THERAPEUTICS-UNT-2014-010450

PATIENT
  Age: 44 Year
  Sex: Female
  Weight: 79.81 kg

DRUGS (2)
  1. REMODULIN [Suspect]
     Active Substance: TREPROSTINIL
     Indication: PULMONARY HYPERTENSION
     Dosage: 0.035 ?G/KG, CONTINUING
     Route: 041
     Dates: start: 20130105
  2. REMODULIN [Suspect]
     Active Substance: TREPROSTINIL
     Dosage: 0.0355 ?G/KG, CONTINUING
     Route: 041
     Dates: start: 20130105

REACTIONS (2)
  - Device leakage [Unknown]
  - Drug dose omission [Unknown]

NARRATIVE: CASE EVENT DATE: 20141102
